FAERS Safety Report 10111536 (Version 1)
Quarter: 2014Q2

REPORT INFORMATION
  Report Type: Other
  Country: US (occurrence: US)
  Receive Date: 20140425
  Receipt Date: 20140425
  Transmission Date: 20141212
  Serious: Yes (Death)
  Sender: FDA-Public Use
  Company Number: US-SHIRE-US201401370

PATIENT
  Age: 72 Year
  Sex: Female

DRUGS (1)
  1. PENTASA [Suspect]
     Indication: COLITIS ULCERATIVE
     Dosage: 1000 MG, 4X/DAY:QID 500MG/2 CAPSULES 4 TIMES DAILY)
     Route: 048

REACTIONS (1)
  - Death [Fatal]
